FAERS Safety Report 7033658-1 (Version None)
Quarter: 2010Q4

REPORT INFORMATION
  Report Type: 
  Country: None (occurrence: None)
  Receive Date: 20101005
  Receipt Date: 20100920
  Transmission Date: 20110411
  Serious: Yes (Hospitalization)
  Sender: FDA-Public Use
  Company Number: 2009-0755

PATIENT
  Age: 73 Year
  Sex: Male

DRUGS (2)
  1. SOMATULINA AUTOGEL 120MG (LANREOTIDE AUTOGEL) (LANREOTIDE) (LANREOTIDE [Suspect]
     Indication: PITUITARY TUMOUR BENIGN
     Dosage: 120 MG (120 MG, 1 IN 28 D)
     Dates: start: 20090101
  2. ANTICOAGULANT NOS (ALL OTHER THERAPEUTIC PRODUCTS) [Concomitant]

REACTIONS (3)
  - HYPOPITUITARISM [None]
  - PITUITARY HAEMORRHAGE [None]
  - PITUITARY INFARCTION [None]
